FAERS Safety Report 21560809 (Version 1)
Quarter: 2022Q4

REPORT INFORMATION
  Report Type: Report from Study
  Country: MY (occurrence: None)
  Receive Date: 20221107
  Receipt Date: 20221107
  Transmission Date: 20230112
  Serious: Yes (Death)
  Sender: FDA-Public Use
  Company Number: 2022A365100

PATIENT
  Age: 21561 Day
  Sex: Female

DRUGS (2)
  1. FASLODEX [Suspect]
     Active Substance: FULVESTRANT
     Indication: Hormone receptor positive breast cancer
     Dosage: 1
     Route: 030
     Dates: start: 20220310, end: 20221102
  2. FASLODEX [Suspect]
     Active Substance: FULVESTRANT
     Indication: Breast cancer metastatic
     Dosage: 1
     Route: 030
     Dates: start: 20220310, end: 20221102

REACTIONS (1)
  - Death [Fatal]

NARRATIVE: CASE EVENT DATE: 20221102
